FAERS Safety Report 10041934 (Version 2)
Quarter: 2014Q1

REPORT INFORMATION
  Report Type: Spontaneous
  Country: US (occurrence: US)
  Receive Date: 20140327
  Receipt Date: 20140327
  Transmission Date: 20141002
  Serious: Yes (Other)
  Sender: FDA-Public Use
  Company Number: US-ASTRAZENECA-2014SE02765

PATIENT
  Age: 17 Year
  Sex: Male
  Weight: 86.6 kg

DRUGS (3)
  1. SEROQUEL [Suspect]
     Indication: BIPOLAR DISORDER
     Route: 048
  2. RISPERIDONE [Suspect]
     Route: 065
  3. BENZOYL PEROXIDE [Concomitant]
     Indication: ACNE
     Route: 061

REACTIONS (2)
  - Drug ineffective [Unknown]
  - Leukopenia [Unknown]
